FAERS Safety Report 6188595-1 (Version None)
Quarter: 2009Q2

REPORT INFORMATION
  Report Type: 
  Country: None (occurrence: None)
  Receive Date: 20090513
  Receipt Date: 20090508
  Transmission Date: 20091009
  Serious: Yes (Hospitalization)
  Sender: FDA-Public Use
  Company Number: A0783780B

PATIENT
  Sex: Female
  Weight: 2.3 kg

DRUGS (3)
  1. COMBIVIR [Suspect]
     Indication: HIV INFECTION
     Dosage: 1TAB PER DAY
     Dates: start: 20080909
  2. GENERAL ANESTHESIA [Suspect]
     Dates: start: 20090324, end: 20090324
  3. KALETRA [Concomitant]
     Indication: HIV INFECTION
     Dates: start: 20080909

REACTIONS (5)
  - CYANOSIS [None]
  - DRUG EXPOSURE DURING PREGNANCY [None]
  - PREMATURE BABY [None]
  - RESPIRATORY DEPTH DECREASED [None]
  - SMALL FOR DATES BABY [None]
